FAERS Safety Report 5806758-9 (Version None)
Quarter: 2008Q3

REPORT INFORMATION
  Report Type: 
  Country: None (occurrence: None)
  Receive Date: 20080709
  Receipt Date: 20080709
  Transmission Date: 20090109
  Serious: Yes (Disabling)
  Sender: FDA-Public Use
  Company Number: None

PATIENT
  Age: 88 Year
  Sex: Female
  Weight: 56.6996 kg

DRUGS (1)
  1. DEGITEK 1.25 MG AMIDE -BERTEK- [Suspect]
     Indication: MITRAL VALVE PROLAPSE
     Dosage: 1 TABLET DAILY SEVERAL YEARS

REACTIONS (5)
  - ASTHENIA [None]
  - GAIT DISTURBANCE [None]
  - MALAISE [None]
  - PALPITATIONS [None]
  - PHARMACEUTICAL PRODUCT COMPLAINT [None]
